FAERS Safety Report 5202880-9 (Version None)
Quarter: 2006Q4

REPORT INFORMATION
  Report Type: 
  Country: None (occurrence: None)
  Receive Date: 20061016
  Receipt Date: 20060803
  Transmission Date: 20070319
  Serious: No
  Sender: FDA-Public Use
  Company Number: 2006SP002901

PATIENT
  Age: 39 Year
  Sex: Female
  Weight: 93.8946 kg

DRUGS (2)
  1. LUNESTA [Suspect]
     Indication: INSOMNIA
     Dosage: 3 MG, UNK, ORA; J3 MG, UNK; ORAL
     Route: 048
     Dates: end: 20060101
  2. LUNESTA [Suspect]
     Indication: INSOMNIA
     Dosage: 3 MG, UNK, ORA; J3 MG, UNK; ORAL
     Route: 048
     Dates: start: 20060101, end: 20060802

REACTIONS (3)
  - ALOPECIA [None]
  - DRUG TOLERANCE [None]
  - DYSGEUSIA [None]
